FAERS Safety Report 8916140 (Version 2)
Quarter: 2013Q2

REPORT INFORMATION
  Report Type: Spontaneous
  Country: US (occurrence: US)
  Receive Date: 20121120
  Receipt Date: 20130410
  Transmission Date: 20140414
  Serious: Yes (Hospitalization)
  Sender: FDA-Public Use
  Company Number: US-GILEAD-2012-0064896

PATIENT
  Age: 66 Year
  Sex: Female

DRUGS (4)
  1. LETAIRIS [Suspect]
     Indication: PULMONARY ARTERIAL HYPERTENSION
     Dosage: 10 MG, QD
     Route: 048
     Dates: start: 20110728
  2. LETAIRIS [Suspect]
     Indication: INTERSTITIAL LUNG DISEASE
  3. LETAIRIS [Suspect]
     Indication: BRONCHIECTASIS
  4. ADCIRCA [Concomitant]

REACTIONS (3)
  - Unevaluable event [Unknown]
  - Plasma cell myeloma [Unknown]
  - Hypotension [Unknown]
